FAERS Safety Report 21216545 (Version 1)
Quarter: 2022Q3

REPORT INFORMATION
  Report Type: Spontaneous
  Country: US (occurrence: None)
  Receive Date: 20220816
  Receipt Date: 20220816
  Transmission Date: 20221027
  Serious: Yes (Hospitalization)
  Sender: FDA-Public Use
  Company Number: 2022A285085

PATIENT
  Age: 27365 Day
  Sex: Female
  Weight: 52.2 kg

DRUGS (5)
  1. SYMBICORT [Suspect]
     Active Substance: BUDESONIDE\FORMOTEROL FUMARATE DIHYDRATE
     Indication: Lung disorder
     Dosage: 2 PUFFS 2 TIMES A DAY, 80/4.5MCG/ACT AEROSOL
     Route: 055
  2. SYMBICORT [Suspect]
     Active Substance: BUDESONIDE\FORMOTEROL FUMARATE DIHYDRATE
     Indication: Lung disorder
     Route: 055
     Dates: start: 20220726
  3. PAXLOVID [Suspect]
     Active Substance: NIRMATRELVIR\RITONAVIR
     Indication: COVID-19
     Dosage: 3 TABLETS IN THE MORNING, AND 3 TABLETS IN THE EVENING
     Route: 065
     Dates: start: 20220720
  4. PAXLOVID [Suspect]
     Active Substance: NIRMATRELVIR\RITONAVIR
     Indication: COVID-19
     Route: 065
     Dates: start: 20220724, end: 20220725
  5. MODERNA COVID-19 VACCINE [Suspect]
     Active Substance: ELASOMERAN
     Indication: COVID-19 prophylaxis
     Dosage: FIRST MODERNA COVID VACCINE (LOT NUMBER: 030L20A) ON 04-FEB-2021, SECOND MODERNA COVID VACCINE (L...
     Route: 065
     Dates: start: 20210204, end: 20220429

REACTIONS (6)
  - Haemoptysis [Recovered/Resolved]
  - Palpitations [Recovered/Resolved]
  - COVID-19 [Unknown]
  - Diarrhoea [Recovered/Resolved]
  - Malaise [Recovered/Resolved]
  - Hypertension [Recovered/Resolved]

NARRATIVE: CASE EVENT DATE: 20220721
